FAERS Safety Report 6334416-3 (Version None)
Quarter: 2009Q3

REPORT INFORMATION
  Report Type: 
  Country: None (occurrence: None)
  Receive Date: 20090831
  Receipt Date: 20090821
  Transmission Date: 20100115
  Serious: Yes (Hospitalization)
  Sender: FDA-Public Use
  Company Number: FR-TEVA-206815USA

PATIENT
  Sex: Male

DRUGS (8)
  1. BISELECT [Suspect]
     Dosage: 10MG IN THE MORNING
     Route: 048
  2. METFORMIN HCL [Suspect]
     Indication: TYPE 2 DIABETES MELLITUS
     Route: 048
  3. TICE BCG [Suspect]
     Route: 043
     Dates: start: 20090201, end: 20090618
  4. GLIBENCLAMIDE [Suspect]
     Indication: TYPE 2 DIABETES MELLITUS
     Route: 048
  5. ROSIGLITAZONE MALEATE [Suspect]
     Indication: TYPE 2 DIABETES MELLITUS
     Route: 048
  6. JANUVIA [Suspect]
     Indication: TYPE 2 DIABETES MELLITUS
     Route: 048
  7. PERINDOPRIL [Suspect]
     Dosage: IN THE MORNING
     Route: 048
  8. EZETIMIBE [Suspect]
     Dosage: IN THE MORNING
     Route: 048

REACTIONS (1)
  - GRANULOMATOUS LIVER DISEASE [None]
